FAERS Safety Report 9258989 (Version 1)
Quarter: 2013Q2

REPORT INFORMATION
  Report Type: Report from Study
  Country: UG (occurrence: UG)
  Receive Date: 20130426
  Receipt Date: 20130426
  Transmission Date: 20140414
  Serious: Yes (Death, Hospitalization)
  Sender: FDA-Public Use
  Company Number: UG-ABBOTT-11P-165-0725104-01

PATIENT
  Age: 19 Year
  Sex: Female

DRUGS (10)
  1. ALUVIA TABLETS [Suspect]
     Indication: HIV INFECTION
     Route: 048
     Dates: start: 20100922, end: 20110312
  2. ALUVIA TABLETS [Suspect]
     Route: 048
     Dates: start: 20110412
  3. TENOFOVIR [Concomitant]
     Indication: HIV INFECTION
     Dates: start: 20100922
  4. HALDOL [Concomitant]
     Indication: PRODUCT USED FOR UNKNOWN INDICATION
     Dates: start: 20110412
  5. ARTANE [Concomitant]
     Indication: PRODUCT USED FOR UNKNOWN INDICATION
     Dates: start: 20110412
  6. FLUCONAZOLE [Concomitant]
     Indication: PRODUCT USED FOR UNKNOWN INDICATION
     Dates: start: 20110428
  7. ETHAMBUTOL [Concomitant]
     Indication: PRODUCT USED FOR UNKNOWN INDICATION
     Dates: start: 20110420
  8. ISONIAZID [Concomitant]
     Indication: PRODUCT USED FOR UNKNOWN INDICATION
     Dates: start: 20110420
  9. PYRAZINAMIDE [Concomitant]
     Indication: PRODUCT USED FOR UNKNOWN INDICATION
     Dates: start: 20110420
  10. LAMIVUDINE [Concomitant]
     Indication: HIV INFECTION
     Dates: start: 20100922

REACTIONS (4)
  - Pneumonia klebsiella [Fatal]
  - Klebsiella sepsis [Fatal]
  - Electrolyte imbalance [Fatal]
  - Hyponatraemia [Fatal]
